FAERS Safety Report 8128998-9 (Version None)
Quarter: 2012Q1

REPORT INFORMATION
  Report Type: 
  Country: None (occurrence: None)
  Receive Date: 20120210
  Receipt Date: 20120206
  Transmission Date: 20120608
  Serious: Yes (Death, Hospitalization, Other)
  Sender: FDA-Public Use
  Company Number: JP-ELI_LILLY_AND_COMPANY-JP201202001688

PATIENT
  Sex: Male
  Weight: 63 kg

DRUGS (11)
  1. PANCREAZE [Concomitant]
     Indication: GASTROINTESTINAL DISORDER
     Dosage: 1 DF, TID
     Route: 048
  2. PRIMPERAN TAB [Concomitant]
     Indication: GASTROINTESTINAL DISORDER
     Dosage: 5 MG, BID
     Route: 048
     Dates: start: 20051213
  3. MARZULENE S [Concomitant]
     Indication: GASTROINTESTINAL DISORDER
     Dosage: 0.7 G, TID
     Route: 048
     Dates: start: 20060530
  4. LAC-B [Concomitant]
     Indication: GASTROINTESTINAL DISORDER
     Dosage: 0.5 G, TID
     Route: 048
     Dates: start: 20051118
  5. GEMZAR [Suspect]
     Indication: NON-SMALL CELL LUNG CANCER STAGE IIIB
     Dosage: 1500 MG, OTHER, BIWEEKLY
     Route: 042
     Dates: start: 20060124, end: 20060606
  6. TAXOL [Concomitant]
     Indication: NON-SMALL CELL LUNG CANCER STAGE IIIB
     Dosage: 230 MG, OTHER, BIWEEKLY
     Route: 042
     Dates: start: 20060124, end: 20060606
  7. CODEINE PHOSPHATE [Concomitant]
     Indication: COUGH
     Dosage: 27 MG, TID
     Route: 048
     Dates: start: 20051129
  8. MAGNESIUM OXIDE [Concomitant]
     Indication: CONSTIPATION PROPHYLAXIS
     Dosage: 0.4 G, TID
     Route: 048
     Dates: start: 20051129
  9. MUCOSTA [Concomitant]
     Indication: GASTROINTESTINAL DISORDER
     Dosage: 100 MG, TID
     Route: 048
     Dates: start: 20051118, end: 20060530
  10. ZANTAC [Concomitant]
     Indication: GASTROINTESTINAL DISORDER
     Dosage: 150 MG, BID
     Route: 048
     Dates: start: 20051213
  11. WARFARIN                           /00014802/ [Concomitant]
     Indication: ATRIAL FIBRILLATION
     Dosage: 1.5 MG, QD
     Route: 048
     Dates: start: 20040501

REACTIONS (6)
  - HYPOAESTHESIA [None]
  - RESPIRATORY FAILURE [None]
  - METASTASES TO BONE [None]
  - MALIGNANT PLEURAL EFFUSION [None]
  - ACTIVITIES OF DAILY LIVING IMPAIRED [None]
  - GENERAL PHYSICAL HEALTH DETERIORATION [None]
